FAERS Safety Report 25035984 (Version 1)
Quarter: 2025Q1

REPORT INFORMATION
  Report Type: Spontaneous
  Country: US (occurrence: None)
  Receive Date: 20250303
  Receipt Date: 20250303
  Transmission Date: 20250409
  Serious: Yes (Disabling)
  Sender: FDA-CTU
  Company Number: None

PATIENT
  Age: 32 Year
  Sex: Female
  Weight: 83.25 kg

DRUGS (1)
  1. BELBUCA [Suspect]
     Active Substance: BUPRENORPHINE HYDROCHLORIDE
     Indication: Pain
     Dosage: 1 FILM EVERY 12 HOURS BUCCAL ?
     Route: 002

REACTIONS (2)
  - Tooth fracture [None]
  - Dental caries [None]

NARRATIVE: CASE EVENT DATE: 20250103
